FAERS Safety Report 14995666 (Version 5)
Quarter: 2018Q3

REPORT INFORMATION
  Report Type: Spontaneous
  Country: CN (occurrence: CN)
  Receive Date: 20180611
  Receipt Date: 20180816
  Transmission Date: 20181010
  Serious: Yes (Hospitalization, Other)
  Sender: FDA-Public Use
  Company Number: CN-BEH-2018091161

PATIENT
  Age: 49 Year
  Sex: Male

DRUGS (2)
  1. ALBUMINAR?20 [Suspect]
     Active Substance: ALBUMIN HUMAN
     Indication: HYPOALBUMINAEMIA
     Dosage: 50 ML, QD
     Route: 041
     Dates: start: 20180525, end: 20180527
  2. ALBUMINAR?20 [Suspect]
     Active Substance: ALBUMIN HUMAN
     Indication: BLOOD ALBUMIN DECREASED
     Dosage: 50 ML, QD
     Route: 041
     Dates: start: 20180521, end: 20180523

REACTIONS (2)
  - Drug ineffective [Recovered/Resolved]
  - Blood albumin decreased [Recovered/Resolved]

NARRATIVE: CASE EVENT DATE: 20180521
